FAERS Safety Report 14159872 (Version 1)
Quarter: 2017Q4

REPORT INFORMATION
  Report Type: Report from Study
  Country: US (occurrence: US)
  Receive Date: 20171103
  Receipt Date: 20171103
  Transmission Date: 20180321
  Serious: No
  Sender: FDA-Public Use
  Company Number: US-AMGEN-USASL2017111740

PATIENT
  Age: 66 Year
  Sex: Female

DRUGS (19)
  1. CONTOUR [Concomitant]
     Dosage: UNK UNK, AS NECESSARY (UNK (IN VITRO FOUR TIMES A DAY PRN)
     Dates: start: 20161213
  2. KLOR-CON [Concomitant]
     Active Substance: POTASSIUM CHLORIDE
     Dosage: 1 DF, QD (EXTENDED RELEASE TABLET)
     Route: 048
     Dates: start: 20160407
  3. METOPROLOL SUCCINATE. [Concomitant]
     Active Substance: METOPROLOL SUCCINATE
     Dosage: 3 DF, QD (EXTENDED RELEASE 24 HOUR)
     Route: 048
     Dates: start: 20170313
  4. PANTOPRAZOLE [Concomitant]
     Active Substance: PANTOPRAZOLE
     Dosage: 1 DF, QD (DELAYED RELEASE)
     Route: 048
     Dates: start: 20170313
  5. SERTRALINE [Concomitant]
     Active Substance: SERTRALINE HYDROCHLORIDE
     Dosage: 1.5 DF, QD
     Route: 048
     Dates: start: 20150520
  6. SYNTHROID [Concomitant]
     Active Substance: LEVOTHYROXINE SODIUM
     Dosage: 1 DF, QD (ON AN EMPTY STOMACH IN THE MORNING)
     Route: 048
     Dates: start: 20170212
  7. ISOSORBIDE DINITRATE. [Concomitant]
     Active Substance: ISOSORBIDE DINITRATE
     Dosage: 1 DF, TID
     Route: 048
     Dates: start: 20170313
  8. LASIX [Concomitant]
     Active Substance: FUROSEMIDE
     Dosage: 2 DF, BID
     Route: 048
     Dates: start: 20170313
  9. NORVASC [Concomitant]
     Active Substance: AMLODIPINE BESYLATE
     Dosage: 1 DF, QD
     Route: 048
     Dates: start: 20170313
  10. ACETAMINOPHEN W/HYDROCODONE [Concomitant]
     Active Substance: ACETAMINOPHEN\HYDROCODONE
     Dosage: 1 DF, AS NECESSARY (HYDROCADONE 5MG-ACETAMINOPHEN 325MG, TWICE A DAY (BID))
     Route: 048
     Dates: start: 20170313
  11. VITAMIN D2 [Concomitant]
     Active Substance: ERGOCALCIFEROL
     Dosage: 1 DF, QWK
     Route: 048
     Dates: start: 20170212
  12. ASA [Concomitant]
     Active Substance: ASPIRIN
     Indication: DEEP VEIN THROMBOSIS
     Dosage: UNK
     Dates: start: 2015
  13. LOSARTAN. [Concomitant]
     Active Substance: LOSARTAN
     Dosage: 1 DF, QD
     Route: 048
     Dates: start: 20170313
  14. XANAX [Concomitant]
     Active Substance: ALPRAZOLAM
     Dosage: 1 DF, TID
     Route: 048
     Dates: start: 20170313
  15. ATORVASTATIN [Concomitant]
     Active Substance: ATORVASTATIN
     Dosage: 1 DF, QD
     Route: 048
     Dates: start: 20170313
  16. ONDANSETRON [Concomitant]
     Active Substance: ONDANSETRON
     Dosage: 1 DF, Q8H (DISINTEGRATING TABLET ON THE TONGUE AND ALLOW TO DISSOLVE)
     Route: 048
     Dates: start: 20170313
  17. PROCRIT [Suspect]
     Active Substance: ERYTHROPOIETIN
     Indication: NEPHROGENIC ANAEMIA
     Dosage: 20000 UNIT, QWK
     Route: 058
     Dates: start: 20170313
  18. FLUTICASONE W/SALMETEROL [Concomitant]
     Active Substance: FLUTICASONE PROPIONATE\SALMETEROL XINAFOATE
     Dosage: 1 DF, BID (FLUTICASONE 250 MCG- SALMETEROL 50 MCG/DOSE, 1 PUFF INHALATION)
     Route: 055
     Dates: start: 20170313
  19. LEVEMIR [Concomitant]
     Active Substance: INSULIN DETEMIR
     Dosage: 30 UNIT, QHS (100 UNIT/ML, INSULIN PEN)
     Route: 058
     Dates: start: 20170313

REACTIONS (1)
  - Platelet count decreased [Unknown]

NARRATIVE: CASE EVENT DATE: 2017
